FAERS Safety Report 20752911 (Version 1)
Quarter: 2022Q2

REPORT INFORMATION
  Report Type: Spontaneous
  Country: US (occurrence: None)
  Receive Date: 20220426
  Receipt Date: 20220426
  Transmission Date: 20220721
  Serious: No
  Sender: FDA-Public Use
  Company Number: US-ROCHE-2923524

PATIENT

DRUGS (1)
  1. ESBRIET [Suspect]
     Active Substance: PIRFENIDONE
     Indication: Idiopathic pulmonary fibrosis
     Dosage: PATIENT ON TITRATING DOSE, IN SECOND WEEK ON 2- 267MG TABS, 3 TIMES A DAY ;ONGOING: YES
     Route: 048

REACTIONS (1)
  - Groin pain [Not Recovered/Not Resolved]
